FAERS Safety Report 18244405 (Version 2)
Quarter: 2020Q4

REPORT INFORMATION
  Report Type: Spontaneous
  Country: RO (occurrence: RO)
  Receive Date: 20200908
  Receipt Date: 20201030
  Transmission Date: 20210113
  Serious: Yes (Other)
  Sender: FDA-Public Use
  Company Number: RO-US-PROVELL PHARMACEUTICALS LLC-9184300

PATIENT
  Age: 62 Year
  Sex: Female

DRUGS (1)
  1. EUTHYROX [Suspect]
     Active Substance: LEVOTHYROXINE SODIUM
     Indication: HYPOTHYROIDISM
     Dosage: 50 MCG/DAY ON MONDAY, WEDNESDAY, FRIDAY AND 75 MCG PER DAY ON TUESDAY AND SATURDAY

REACTIONS (1)
  - Choking [Recovered/Resolved]
